FAERS Safety Report 5606527-9 (Version None)
Quarter: 2008Q1

REPORT INFORMATION
  Report Type: 
  Country: None (occurrence: None)
  Receive Date: 20080129
  Receipt Date: 20080125
  Transmission Date: 20080703
  Serious: Yes (Hospitalization)
  Sender: FDA-Public Use
  Company Number: B0505150A

PATIENT
  Age: 47 Year
  Sex: Female
  Weight: 51 kg

DRUGS (6)
  1. FLOLAN [Suspect]
     Indication: PULMONARY HYPERTENSION
     Route: 042
     Dates: start: 20061129
  2. WARFARIN SODIUM [Suspect]
     Route: 048
  3. FUROSEMIDE [Concomitant]
     Route: 048
  4. VALTREX [Concomitant]
     Route: 048
  5. GENTACIN [Concomitant]
     Route: 061
  6. DOBUTAMINE HCL [Concomitant]
     Route: 042

REACTIONS (3)
  - ENDOCARDITIS [None]
  - MENORRHAGIA [None]
  - PYREXIA [None]
